FAERS Safety Report 4655348-2 (Version None)
Quarter: 2005Q1

REPORT INFORMATION
  Report Type: 
  Country: None (occurrence: None)
  Receive Date: 20050331
  Receipt Date: 20040803
  Transmission Date: 20050727
  Serious: No
  Sender: FDA-Public Use
  Company Number: US086013

PATIENT
  Age: 45 Year
  Sex: Female

DRUGS (5)
  1. NEULASTA [Suspect]
     Indication: CHEMOTHERAPY
     Dates: start: 20030315, end: 20030708
  2. DOXORUBICIN HYDROCHLORIDE [Concomitant]
  3. CYCLPHOSPHAMIDE [Concomitant]
  4. ACETAMINOPHEN [Concomitant]
  5. DOCETAXEL [Concomitant]

REACTIONS (4)
  - BONE PAIN [None]
  - HAEMOGLOBIN DECREASED [None]
  - INFLUENZA LIKE ILLNESS [None]
  - PYREXIA [None]
